FAERS Safety Report 20733546 (Version 2)
Quarter: 2022Q2

REPORT INFORMATION
  Report Type: Spontaneous
  Country: JP (occurrence: JP)
  Receive Date: 20220421
  Receipt Date: 20220525
  Transmission Date: 20220721
  Serious: Yes (Disabling)
  Sender: FDA-Public Use
  Company Number: JP-NBI-J202122317BIPI

PATIENT
  Age: 75 Year
  Sex: Male

DRUGS (2)
  1. OFEV [Suspect]
     Active Substance: NINTEDANIB
     Indication: Idiopathic pulmonary fibrosis
     Route: 048
     Dates: start: 20211029
  2. OFEV [Suspect]
     Active Substance: NINTEDANIB
     Route: 048
     Dates: start: 20211201

REACTIONS (9)
  - Thrombosis [Not Recovered/Not Resolved]
  - Amblyopia [Not Recovered/Not Resolved]
  - White blood cell count decreased [Recovering/Resolving]
  - Platelet count decreased [Recovering/Resolving]
  - Cough [Recovering/Resolving]
  - Productive cough [Unknown]
  - Procedural pain [Recovered/Resolved]
  - Vital capacity decreased [Unknown]
  - Dyspnoea exertional [Not Recovered/Not Resolved]

NARRATIVE: CASE EVENT DATE: 20211029
